FAERS Safety Report 9557378 (Version 1)
Quarter: 2013Q3

REPORT INFORMATION
  Report Type: Spontaneous
  Country: GB (occurrence: None)
  Receive Date: 20130924
  Receipt Date: 20130924
  Transmission Date: 20140515
  Serious: Yes (Other)
  Sender: FDA-Public Use
  Company Number: FK201304305

PATIENT
  Age: 62 Year
  Sex: Male
  Weight: 95 kg

DRUGS (12)
  1. FLUOROURACIL [Suspect]
     Indication: PANCREATIC CARCINOMA
     Dosage: 6600 MG, 14 DAYS, INTRAVENOUS (NOT OTHERWISE SPECIFIED)
     Route: 042
     Dates: start: 20130318, end: 20130717
  2. IRINOTECAN [Suspect]
     Indication: PANCREATIC CARCINOMA
     Route: 042
     Dates: start: 20130318, end: 20130715
  3. OXALIPLATIN [Suspect]
     Indication: PANCREATIC CARCINOMA
     Dosage: 200 MG, 14 DAYS, INTRAVENOUS (NOT OTHERWISE SPECIFIED)
     Route: 042
     Dates: start: 20130318, end: 20130715
  4. ETHANOL (ETHANOL) [Concomitant]
  5. CITALOPRAM (CITALOPRAM) [Concomitant]
  6. CODEINE PHOSPHATE (CODEINE PHOSPHATE) [Concomitant]
  7. ALPHA AMYLASE (ALPHA-AMYLASE SWINE PANCREAS) [Concomitant]
  8. AMYLASE (AMYLASE) [Concomitant]
  9. LIPASE (LIPASE) [Concomitant]
  10. PANCREATIN (PANCREATIN) [Concomitant]
  11. PROTEASE (PROTEASE) [Concomitant]
  12. VALSARTAN (VALSARTAN) [Concomitant]

REACTIONS (3)
  - Restlessness [None]
  - Weight decreased [None]
  - Confusional state [None]
